FAERS Safety Report 18512301 (Version 1)
Quarter: 2020Q4

REPORT INFORMATION
  Report Type: Spontaneous
  Country: US (occurrence: US)
  Receive Date: 20201117
  Receipt Date: 20201117
  Transmission Date: 20210114
  Serious: Yes (Other)
  Sender: FDA-Public Use
  Company Number: US-PFIZER INC-2020449986

PATIENT
  Age: 49 Year
  Sex: Female
  Weight: 99.77 kg

DRUGS (3)
  1. HUMIRA [Suspect]
     Active Substance: ADALIMUMAB
     Dosage: 40 MG (40 MG/0.8 ML,1 IN 2 WK)
     Route: 058
     Dates: start: 20201103
  2. XELJANZ [Suspect]
     Active Substance: TOFACITINIB CITRATE
     Indication: RHEUMATOID ARTHRITIS
     Dosage: UNK
  3. HUMIRA [Suspect]
     Active Substance: ADALIMUMAB
     Indication: RHEUMATOID ARTHRITIS
     Dosage: 40 MG (40 MG/0.8 ML,1 IN 2 WK)
     Route: 058
     Dates: end: 201906

REACTIONS (6)
  - Mobility decreased [Recovering/Resolving]
  - Autoimmune disorder [Not Recovered/Not Resolved]
  - Drug ineffective [Unknown]
  - Inflammatory marker increased [Not Recovered/Not Resolved]
  - Liver disorder [Not Recovered/Not Resolved]
  - Arthralgia [Not Recovered/Not Resolved]

NARRATIVE: CASE EVENT DATE: 2019
